FAERS Safety Report 5610758-1 (Version None)
Quarter: 2008Q1

REPORT INFORMATION
  Report Type: 
  Country: None (occurrence: None)
  Receive Date: 20080201
  Receipt Date: 20080124
  Transmission Date: 20080703
  Serious: Yes (Hospitalization)
  Sender: FDA-Public Use
  Company Number: PHHO2007DE16878

PATIENT
  Age: 63 Year
  Sex: Female

DRUGS (14)
  1. ASPIRIN [Concomitant]
  2. METFORMIN HCL [Concomitant]
  3. MEPROLOL [Concomitant]
  4. EUTHYROX [Concomitant]
  5. LORZAAR [Concomitant]
  6. FUROSAL [Concomitant]
  7. NIFEDIPINE [Concomitant]
  8. OMEPRAZOLE [Concomitant]
  9. ACTRAPHANE HM [Concomitant]
  10. NOVOLET 30 R CHU [Concomitant]
  11. PIPAMPERONE [Concomitant]
  12. TRIMIPRAMINE MALEATE [Concomitant]
  13. CARBAMAZEPIN ^NEURAXPHARM^ [Concomitant]
  14. IMATINIB MESYLATE [Suspect]
     Indication: GASTROINTESTINAL STROMAL TUMOUR
     Dosage: 400 MG, QD
     Route: 048
     Dates: start: 20060524, end: 20070928

REACTIONS (1)
  - ERYSIPELAS [None]
